FAERS Safety Report 6822361-6 (Version None)
Quarter: 2010Q3

REPORT INFORMATION
  Report Type: 
  Country: None (occurrence: None)
  Receive Date: 20100708
  Receipt Date: 20100627
  Transmission Date: 20110219
  Serious: Yes (Other)
  Sender: FDA-Public Use
  Company Number: PHHY2010MX42046

PATIENT
  Sex: Female

DRUGS (2)
  1. DIOVAN [Suspect]
     Indication: HYPERTENSION
     Dosage: 1 TABLET (80 MG) DAILY
     Route: 048
  2. TAFIL [Concomitant]
     Dosage: 1 TABLET DAILY

REACTIONS (5)
  - AGGRESSION [None]
  - ANXIETY [None]
  - BLOOD PRESSURE INADEQUATELY CONTROLLED [None]
  - EMOTIONAL DISORDER [None]
  - HYPOAESTHESIA [None]
